FAERS Safety Report 5778388-9 (Version None)
Quarter: 2008Q2

REPORT INFORMATION
  Report Type: 
  Country: None (occurrence: None)
  Receive Date: 20080619
  Receipt Date: 20080613
  Transmission Date: 20081010
  Serious: Yes (Other)
  Sender: FDA-Public Use
  Company Number: BR-BAYER-200815005LA

PATIENT
  Age: 51 Year
  Sex: Male
  Weight: 113 kg

DRUGS (5)
  1. CIPRO [Suspect]
     Indication: LOCALISED INFECTION
     Dosage: TOTAL DAILY DOSE: 1000 MG  UNIT DOSE: 500 MG
     Route: 048
     Dates: start: 20080530, end: 20080611
  2. RIVOTRIL [Concomitant]
     Indication: SEDATIVE THERAPY
     Dosage: TOTAL DAILY DOSE: 2 MG  UNIT DOSE: 2 MG
     Route: 048
     Dates: start: 20060101
  3. CAPOTEN [Concomitant]
     Indication: BLOOD PRESSURE MANAGEMENT
     Dosage: TOTAL DAILY DOSE: 25 MG  UNIT DOSE: 12.5 MG
     Route: 048
     Dates: start: 20060101
  4. MAREVAN [Concomitant]
     Indication: ANTICOAGULANT THERAPY
     Dosage: TOTAL DAILY DOSE: 5 MG  UNIT DOSE: 5 MG
     Route: 048
     Dates: start: 20060101
  5. ANCORON [Concomitant]
     Indication: ARRHYTHMIA
     Dosage: TOTAL DAILY DOSE: 100 MG  UNIT DOSE: 100 MG
     Route: 048
     Dates: start: 20060101

REACTIONS (3)
  - ARRHYTHMIA [None]
  - BLOOD PRESSURE INCREASED [None]
  - TACHYCARDIA [None]
